FAERS Safety Report 9941028 (Version 1)
Quarter: 2014Q1

REPORT INFORMATION
  Report Type: Spontaneous
  Country: CA (occurrence: CA)
  Receive Date: 20140303
  Receipt Date: 20140303
  Transmission Date: 20141002
  Serious: Yes (Other)
  Sender: FDA-Public Use
  Company Number: CA-BRISTOL-MYERS SQUIBB COMPANY-20276572

PATIENT
  Sex: Female

DRUGS (1)
  1. ELIQUIS [Suspect]
     Dates: start: 20131219

REACTIONS (2)
  - Gastrointestinal disorder [Unknown]
  - Convulsion [Unknown]
